FAERS Safety Report 6548169-7 (Version None)
Quarter: 2010Q1

REPORT INFORMATION
  Report Type: 
  Country: None (occurrence: None)
  Receive Date: 20100124
  Receipt Date: 20090126
  Transmission Date: 20100710
  Serious: No
  Sender: FDA-Public Use
  Company Number: US-ALLERGAN-0900943US

PATIENT
  Sex: Female

DRUGS (5)
  1. RESTASIS [Suspect]
     Indication: DRY EYE
     Route: 047
  2. METHOTREXATE [Concomitant]
     Dosage: 250 MG, 5 X/WK
  3. FOLIC ACID [Concomitant]
     Dosage: 1 MG, QD
  4. MOMETASONE FUROATE [Concomitant]
     Dosage: 0.1 %, QD
  5. ESTRACE [Concomitant]

REACTIONS (2)
  - PHOTOPHOBIA [None]
  - VITREOUS FLOATERS [None]
